FAERS Safety Report 19999154 (Version 1)
Quarter: 2021Q4

REPORT INFORMATION
  Report Type: Report from Study
  Country: US (occurrence: US)
  Receive Date: 20211026
  Receipt Date: 20211026
  Transmission Date: 20220303
  Serious: Yes (Hospitalization, Other)
  Sender: FDA-Public Use
  Company Number: US-NOVARTISPH-NVSC2021US234753

PATIENT
  Age: 15 Year
  Sex: Male
  Weight: 39.4 kg

DRUGS (7)
  1. METHOTREXATE SODIUM [Suspect]
     Active Substance: METHOTREXATE SODIUM
     Indication: Crohn^s disease
     Dosage: 10 MG (1 IN 1 WK) (3 YEARS)
     Route: 048
     Dates: start: 20140522, end: 20171106
  2. METHOTREXATE SODIUM [Suspect]
     Active Substance: METHOTREXATE SODIUM
     Dosage: 15 MG (1 IN 1 WK)
     Route: 048
     Dates: start: 20180630, end: 20180720
  3. METHOTREXATE SODIUM [Suspect]
     Active Substance: METHOTREXATE SODIUM
     Dosage: 25 MG (1 IN 1 WK)
     Route: 048
     Dates: start: 20181019, end: 20190220
  4. HUMIRA [Suspect]
     Active Substance: ADALIMUMAB
     Indication: Crohn^s disease
     Dosage: 40 MG (1 IN 1 WK-2) (DURATION 4 YEAR)
     Route: 058
     Dates: start: 20140301, end: 20171022
  5. HUMIRA [Suspect]
     Active Substance: ADALIMUMAB
     Dosage: 40 MG (1 IN 2 WK)
     Route: 058
     Dates: start: 20181018, end: 20190712
  6. HUMIRA [Suspect]
     Active Substance: ADALIMUMAB
     Dosage: 40 MG (1 IN 1 WK)
     Route: 058
     Dates: start: 20190719
  7. ZOFRAN [Concomitant]
     Active Substance: ONDANSETRON HYDROCHLORIDE
     Indication: Product used for unknown indication
     Dosage: UNK (EVERY 6 HOUR AS NEED 4 MG)
     Route: 065
     Dates: start: 20170417

REACTIONS (15)
  - Hypoxia [Recovered/Resolved]
  - Pyrexia [Unknown]
  - Anaemia [Not Recovered/Not Resolved]
  - Tonsillitis streptococcal [Recovered/Resolved]
  - Crohn^s disease [Recovered/Resolved]
  - Tachycardia [Unknown]
  - Diarrhoea haemorrhagic [Unknown]
  - Abdominal pain upper [Unknown]
  - Decreased appetite [Unknown]
  - Asthenia [Unknown]
  - Headache [Unknown]
  - Fatigue [Unknown]
  - Vomiting [Unknown]
  - Diarrhoea [Unknown]
  - Off label use [Unknown]

NARRATIVE: CASE EVENT DATE: 20171022
